FAERS Safety Report 9144734 (Version 1)
Quarter: 2013Q1

REPORT INFORMATION
  Report Type: Spontaneous
  Country: US (occurrence: US)
  Receive Date: 20130306
  Receipt Date: 20130306
  Transmission Date: 20140127
  Serious: No
  Sender: FDA-Public Use
  Company Number: US-009507513-1303USA001284

PATIENT
  Age: 61 Year
  Sex: Female

DRUGS (3)
  1. DEXAMETHASONE [Suspect]
     Indication: PLASMA CELL LEUKAEMIA
  2. BORTEZOMIB [Concomitant]
     Indication: PLASMA CELL LEUKAEMIA
  3. LENALIDOMIDE [Concomitant]
     Indication: PLASMA CELL LEUKAEMIA

REACTIONS (1)
  - Systolic hypertension [Unknown]
